FAERS Safety Report 6431348-7 (Version None)
Quarter: 2009Q4

REPORT INFORMATION
  Report Type: 
  Country: None (occurrence: None)
  Receive Date: 20091106
  Receipt Date: 20091102
  Transmission Date: 20100525
  Serious: Yes (Hospitalization, Other)
  Sender: FDA-Public Use
  Company Number: AU-ROXANE LABORATORIES, INC.-2009-RO-01120RO

PATIENT
  Age: 67 Year
  Sex: Female

DRUGS (4)
  1. LITHIUM CARBONATE [Suspect]
     Indication: BIPOLAR DISORDER
     Dosage: 500 MG
  2. RISPERIDONE [Suspect]
  3. DIAZEPAM [Suspect]
  4. VENLAFAXINE [Suspect]

REACTIONS (9)
  - CONFUSIONAL STATE [None]
  - DEHYDRATION [None]
  - DISEASE RECURRENCE [None]
  - HYPERCALCAEMIA [None]
  - HYPERPARATHYROIDISM [None]
  - PARATHYROID TUMOUR BENIGN [None]
  - RENAL IMPAIRMENT [None]
  - THERAPEUTIC AGENT TOXICITY [None]
  - TREMOR [None]
